FAERS Safety Report 18810972 (Version 1)
Quarter: 2021Q1

REPORT INFORMATION
  Report Type: Spontaneous
  Country: US (occurrence: US)
  Receive Date: 20210130
  Receipt Date: 20210130
  Transmission Date: 20210419
  Serious: No
  Sender: FDA-Public Use
  Company Number: US-009507513-2101USA004394

PATIENT
  Age: 74 Year
  Sex: Female

DRUGS (2)
  1. SIVEXTRO [Suspect]
     Active Substance: TEDIZOLID PHOSPHATE
     Indication: INFECTION PROPHYLAXIS
     Dosage: 200 MG, ONCE PER DAY
     Route: 048
     Dates: start: 20201210
  2. THYROID [Concomitant]
     Active Substance: LEVOTHYROXINE\LIOTHYRONINE

REACTIONS (1)
  - Vision blurred [Not Recovered/Not Resolved]

NARRATIVE: CASE EVENT DATE: 20201217
